FAERS Safety Report 17235925 (Version 1)
Quarter: 2020Q1

REPORT INFORMATION
  Report Type: Spontaneous
  Country: PL (occurrence: PL)
  Receive Date: 20200106
  Receipt Date: 20200106
  Transmission Date: 20200409
  Serious: Yes (Other)
  Sender: FDA-Public Use
  Company Number: PL-ABBVIE-20K-129-3220459-00

PATIENT
  Age: 63 Year
  Sex: Male

DRUGS (1)
  1. MAVIRET [Suspect]
     Active Substance: GLECAPREVIR\PIBRENTASVIR
     Indication: CHRONIC HEPATITIS C
     Dosage: FORM STRENGTH:- 100 MG/40 MG
     Route: 048
     Dates: start: 20190128

REACTIONS (3)
  - Pruritus [Unknown]
  - Eyelid oedema [Unknown]
  - Nasal oedema [Unknown]
